FAERS Safety Report 21794312 (Version 1)
Quarter: 2022Q4

REPORT INFORMATION
  Report Type: Spontaneous
  Country: US (occurrence: US)
  Receive Date: 20221229
  Receipt Date: 20221229
  Transmission Date: 20230112
  Serious: No
  Sender: FDA-Public Use
  Company Number: US-PFIZER INC-202201398409

PATIENT
  Age: 38 Year
  Sex: Female

DRUGS (13)
  1. PAXLOVID [Suspect]
     Active Substance: NIRMATRELVIR\RITONAVIR
     Indication: COVID-19 treatment
     Dosage: UNK
     Dates: start: 20221214, end: 20221219
  2. JARDIANCE [Concomitant]
     Active Substance: EMPAGLIFLOZIN
  3. VENLAFAXINE [Concomitant]
     Active Substance: VENLAFAXINE HYDROCHLORIDE
     Dosage: 75 MG, 1X/DAY
  4. SUMATRIPTAN [Concomitant]
     Active Substance: SUMATRIPTAN
  5. IRON [Concomitant]
     Active Substance: IRON
  6. BUPROPION [Concomitant]
     Active Substance: BUPROPION
     Dosage: 200 MG, 2X/DAY
  7. LOSARTAN AND HYDROCHLOROTHIAZIDE [Concomitant]
     Active Substance: HYDROCHLOROTHIAZIDE\LOSARTAN POTASSIUM
  8. AMLODIPINE [Concomitant]
     Active Substance: AMLODIPINE BESYLATE
  9. METOPROLOL SUCCINATE [Concomitant]
     Active Substance: METOPROLOL SUCCINATE
     Dosage: 25 MG, 1X/DAY
  10. OZEMPIC [Concomitant]
     Active Substance: SEMAGLUTIDE
  11. TOUJEO [Concomitant]
     Active Substance: INSULIN GLARGINE
  12. VITAMIN D NOS [Concomitant]
     Active Substance: VITAMIN D NOS
  13. EMERGEN-C [Concomitant]
     Active Substance: VITAMINS

REACTIONS (4)
  - Nasal congestion [Not Recovered/Not Resolved]
  - Cough [Not Recovered/Not Resolved]
  - Rhinorrhoea [Not Recovered/Not Resolved]
  - Headache [Not Recovered/Not Resolved]

NARRATIVE: CASE EVENT DATE: 20221226
